FAERS Safety Report 8955972 (Version 1)
Quarter: 2012Q4

REPORT INFORMATION
  Report Type: 
  Country: IN (occurrence: IN)
  Receive Date: 20121210
  Receipt Date: 20121210
  Transmission Date: 20130627
  Serious: Yes (Hospitalization, Other)
  Sender: FDA-Public Use
  Company Number: IN-ELI_LILLY_AND_COMPANY-IN201211008992

PATIENT
  Age: 27 Year
  Sex: Male

DRUGS (4)
  1. OLANZAPINE [Suspect]
     Dosage: 10 mg, other
     Route: 030
  2. LORAZEPAM [Concomitant]
     Dosage: 4 mg, tid
  3. LORAZEPAM [Concomitant]
     Dosage: 2 mg, qd
  4. THIAMINE [Concomitant]
     Dosage: 100 mg, bid

REACTIONS (2)
  - Tardive dyskinesia [Recovering/Resolving]
  - Blepharospasm [Unknown]
